FAERS Safety Report 4866068-3 (Version None)
Quarter: 2005Q4

REPORT INFORMATION
  Report Type: 
  Country: None (occurrence: None)
  Receive Date: 20051221
  Receipt Date: 20051209
  Transmission Date: 20060501
  Serious: Yes (Death, Hospitalization)
  Sender: FDA-Public Use
  Company Number: HQWYE926809DEC05

PATIENT
  Age: 79 Year
  Sex: Male

DRUGS (6)
  1. AMIODARONE HCL [Suspect]
     Dosage: 200 MG 1X PER 1 DAY
  2. LEVOTHYROXINE SODIUM [Concomitant]
  3. FUROSEMIDE [Concomitant]
  4. ASPIRIN [Concomitant]
  5. ATORVASTATIN CALCIUM [Concomitant]
  6. RANITIDINE [Concomitant]

REACTIONS (3)
  - BACTERIAL INFECTION [None]
  - PATHOGEN RESISTANCE [None]
  - SUPERINFECTION [None]
